FAERS Safety Report 12210660 (Version 2)
Quarter: 2016Q2

REPORT INFORMATION
  Report Type: Spontaneous
  Country: US (occurrence: US)
  Receive Date: 20160325
  Receipt Date: 20160422
  Transmission Date: 20160815
  Serious: No
  Sender: FDA-Public Use
  Company Number: US-GLAXOSMITHKLINE-US2016GSK039474

PATIENT
  Age: 55 Year
  Sex: Female

DRUGS (2)
  1. METHOTREXATE SOLUTION FOR INJECTION [Suspect]
     Active Substance: METHOTREXATE SODIUM
     Indication: RHEUMATOID ARTHRITIS
     Route: 042
  2. TANZEUM [Suspect]
     Active Substance: ALBIGLUTIDE
     Indication: TYPE 2 DIABETES MELLITUS
     Dosage: 30 MG, WE
     Route: 042
     Dates: start: 20160318

REACTIONS (9)
  - Erythema [Unknown]
  - Product preparation error [Unknown]
  - Adverse event [Unknown]
  - Injection site erythema [Unknown]
  - Device use error [Unknown]
  - Pruritus [Unknown]
  - Injection site reaction [Unknown]
  - Injection site pruritus [None]
  - Skin reaction [Unknown]

NARRATIVE: CASE EVENT DATE: 20160318
